FAERS Safety Report 8230602-6 (Version None)
Quarter: 2012Q1

REPORT INFORMATION
  Report Type: 
  Country: None (occurrence: None)
  Receive Date: 20120323
  Receipt Date: 20120312
  Transmission Date: 20120608
  Serious: Yes (Death)
  Sender: FDA-Public Use
  Company Number: GB-SANOFI-AVENTIS-2012SA017103

PATIENT
  Age: 26 Year
  Sex: Female
  Weight: 93.1 kg

DRUGS (4)
  1. FLUTICASONE PROPIONATE/SALMETEROL [Concomitant]
     Dates: start: 20090119
  2. NOVORAPID [Suspect]
     Dosage: DOSE:106 UNIT(S)
     Route: 058
     Dates: start: 20091002, end: 20091102
  3. LANTUS [Suspect]
     Dosage: DOSE:30 UNIT(S)
     Route: 058
     Dates: start: 20091002, end: 20091102
  4. ALBUTEROL [Concomitant]
     Dates: start: 20070120

REACTIONS (1)
  - SUDDEN DEATH [None]
